FAERS Safety Report 8165149-9 (Version None)
Quarter: 2012Q1

REPORT INFORMATION
  Report Type: 
  Country: None (occurrence: None)
  Receive Date: 20120227
  Receipt Date: 20120223
  Transmission Date: 20120608
  Serious: No
  Sender: FDA-Public Use
  Company Number: US-PFIZER INC-2012049455

PATIENT
  Sex: Female
  Weight: 60.771 kg

DRUGS (4)
  1. NICORETTE [Suspect]
     Indication: SMOKING CESSATION THERAPY
     Dosage: UNK
  2. NICOTROL [Suspect]
     Indication: SMOKING CESSATION THERAPY
     Dosage: UNK
     Route: 055
     Dates: start: 20080101, end: 20080101
  3. ATROVENT HFA [Concomitant]
     Indication: OXYGEN SATURATION DECREASED
     Dosage: UNK, 4XDAY
  4. VENTOLIN HFA [Concomitant]
     Indication: OXYGEN SATURATION DECREASED
     Dosage: UNK, AS NEEDED

REACTIONS (1)
  - DRUG INEFFECTIVE [None]
